FAERS Safety Report 15646941 (Version 3)
Quarter: 2020Q1

REPORT INFORMATION
  Report Type: Report from Study
  Country: BE (occurrence: BE)
  Receive Date: 20181122
  Receipt Date: 20200213
  Transmission Date: 20200409
  Serious: Yes (Hospitalization, Other)
  Sender: FDA-Public Use
  Company Number: BE-ACCORD-092892

PATIENT
  Age: 69 Year
  Sex: Female
  Weight: 67 kg

DRUGS (14)
  1. LIXIANA [Concomitant]
     Active Substance: EDOXABAN TOSYLATE
  2. ZOLPIDEM/ZOLPIDEM TARTRATE [Concomitant]
     Active Substance: ZOLPIDEM TARTRATE
  3. DULCOLAX NOS [Concomitant]
     Active Substance: BISACODYL OR DOCUSATE SODIUM
  4. DOXORUBICIN [Suspect]
     Active Substance: DOXORUBICIN
     Indication: OVARIAN CANCER
     Dosage: 30 MG/M2, CYCLIC (EVERY 4 WEEKS): CYCLICAL
     Route: 042
     Dates: start: 20180903, end: 20180903
  5. DAFALGAN [Concomitant]
     Active Substance: ACETAMINOPHEN
  6. BISOPROLOL/BISOPROLOL FUMARATE/BISOPROLOL HEMIFUMARATE [Concomitant]
     Active Substance: BISOPROLOL
  7. FARLETUZUMAB [Suspect]
     Active Substance: FARLETUZUMAB
     Indication: PRODUCT USED FOR UNKNOWN INDICATION
     Route: 042
     Dates: start: 20180917, end: 20181126
  8. CALEYX [Suspect]
     Active Substance: DOXORUBICIN HYDROCHLORIDE
     Indication: OVARIAN CANCER
     Dosage: 30 MG/M2, CYCLIC (EVERY 4 WEEKS)
     Route: 042
     Dates: start: 20180903
  9. CALEYX [Suspect]
     Active Substance: DOXORUBICIN HYDROCHLORIDE
     Indication: OVARIAN CANCER
     Dosage: 30 MG/M2, CYCLIC (EVERY 4 WEEKS)
     Route: 042
     Dates: start: 20180903, end: 20180903
  10. CARBOPLATIN. [Suspect]
     Active Substance: CARBOPLATIN
     Indication: OVARIAN CANCER
     Dosage: 5 AUC, CYCLIC
     Route: 042
     Dates: start: 20180903, end: 20180903
  11. FARLETUZUMAB [Suspect]
     Active Substance: FARLETUZUMAB
     Indication: OVARIAN CANCER
     Dosage: BLINDED 10 MG/KG OR PLACEBO (1 IN 1 WK)
     Route: 042
     Dates: start: 20180903, end: 20180910
  12. CARBOPLATIN. [Suspect]
     Active Substance: CARBOPLATIN
     Indication: PRODUCT USED FOR UNKNOWN INDICATION
     Route: 042
     Dates: start: 20180903
  13. DOXORUBICIN [Suspect]
     Active Substance: DOXORUBICIN
     Indication: PRODUCT USED FOR UNKNOWN INDICATION
     Dosage: 30 MG/M2, CYCLIC (EVERY 4 WEEKS): CYCLICAL
     Route: 042
     Dates: start: 20180903
  14. APOCARD [Concomitant]
     Active Substance: FLECAINIDE ACETATE

REACTIONS (7)
  - Frequent bowel movements [Unknown]
  - Anaemia [Recovering/Resolving]
  - Thrombocytopenia [Recovering/Resolving]
  - Anal incontinence [Unknown]
  - Anal haemorrhage [Unknown]
  - Febrile neutropenia [Recovered/Resolved]
  - White blood cell count decreased [Recovered/Resolved]

NARRATIVE: CASE EVENT DATE: 201809
